FAERS Safety Report 21511072 (Version 1)
Quarter: 2022Q4

REPORT INFORMATION
  Report Type: Report from Study
  Country: US (occurrence: US)
  Receive Date: 20221027
  Receipt Date: 20221027
  Transmission Date: 20230112
  Serious: Yes (Hospitalization)
  Sender: FDA-Public Use
  Company Number: US-ABBVIE-4170618

PATIENT
  Sex: Male

DRUGS (2)
  1. SKYRIZI [Suspect]
     Active Substance: RISANKIZUMAB-RZAA
     Indication: Product used for unknown indication
     Route: 058
  2. Covid vaccine Pfizer/BioNTech [Concomitant]
     Indication: COVID-19 immunisation

REACTIONS (2)
  - White blood cell count decreased [Recovering/Resolving]
  - COVID-19 [Recovering/Resolving]
